FAERS Safety Report 8244253-0 (Version None)
Quarter: 2012Q1

REPORT INFORMATION
  Report Type: 
  Country: None (occurrence: None)
  Receive Date: 20120329
  Receipt Date: 20120320
  Transmission Date: 20120608
  Serious: Yes (Hospitalization)
  Sender: FDA-Public Use
  Company Number: US-ACTELION-A-NJ2011-51369

PATIENT

DRUGS (3)
  1. COUMADIN [Concomitant]
  2. TRACLEER [Suspect]
     Indication: PULMONARY ARTERIAL HYPERTENSION
     Dosage: UNK
     Route: 048
     Dates: start: 20091203
  3. CALCIUM CHANNEL BLOCKERS [Concomitant]

REACTIONS (3)
  - BLOOD COUNT ABNORMAL [None]
  - BLOOD DISORDER [None]
  - BACK PAIN [None]
